FAERS Safety Report 14011980 (Version 2)
Quarter: 2017Q4

REPORT INFORMATION
  Report Type: Report from Study
  Country: US (occurrence: US)
  Receive Date: 20170926
  Receipt Date: 20171011
  Transmission Date: 20180321
  Serious: Yes (Hospitalization, Other)
  Sender: FDA-Public Use
  Company Number: US-JNJFOC-20170924048

PATIENT
  Age: 77 Year
  Sex: Male
  Weight: 56 kg

DRUGS (23)
  1. IMMUNOGLOBULINS NOS [Concomitant]
     Active Substance: IMMUNE GLOBULIN NOS
     Indication: PNEUMONIA
  2. IMMUNOGLOBULINS NOS [Concomitant]
     Active Substance: IMMUNE GLOBULIN NOS
     Indication: SINUSITIS
  3. BENADRYL [Concomitant]
     Active Substance: DIPHENHYDRAMINE HYDROCHLORIDE
     Route: 042
  4. ITRACONAZOLE. [Concomitant]
     Active Substance: ITRACONAZOLE
  5. GLUCOSAMINE SULFATE [Concomitant]
     Active Substance: GLUCOSAMINE SULFATE
  6. COMPAZINE [Concomitant]
     Active Substance: PROCHLORPERAZINE MALEATE
  7. TYLENOL [Concomitant]
     Active Substance: ACETAMINOPHEN
  8. DECADRON [Concomitant]
     Active Substance: DEXAMETHASONE
  9. CARIMUNE NF [Concomitant]
     Active Substance: HUMAN IMMUNOGLOBULIN G
  10. SALBUTAMOL SULFATE [Concomitant]
     Active Substance: ALBUTEROL SULFATE
  11. FILGRASTIM [Concomitant]
     Active Substance: FILGRASTIM
  12. SOLU-MEDROL [Concomitant]
     Active Substance: METHYLPREDNISOLONE SODIUM SUCCINATE
  13. AVELOX [Concomitant]
     Active Substance: MOXIFLOXACIN HYDROCHLORIDE
  14. DIPHENHYDRAMINE. [Concomitant]
     Active Substance: DIPHENHYDRAMINE
     Route: 042
  15. MEGACE [Concomitant]
     Active Substance: MEGESTROL ACETATE
     Route: 048
  16. IMBRUVICA [Suspect]
     Active Substance: IBRUTINIB
     Indication: CHRONIC LYMPHOCYTIC LEUKAEMIA RECURRENT
     Route: 065
     Dates: start: 20160914
  17. EMEND [Concomitant]
     Active Substance: APREPITANT
     Route: 042
  18. MULTIVITAMINS [Concomitant]
     Active Substance: VITAMINS
  19. ZOFRAN [Concomitant]
     Active Substance: ONDANSETRON HYDROCHLORIDE
  20. NASONEX [Concomitant]
     Active Substance: MOMETASONE FUROATE
  21. LOPERAMIDE [Concomitant]
     Active Substance: LOPERAMIDE
  22. PROCHLORPERAZINE MALEATE. [Concomitant]
     Active Substance: PROCHLORPERAZINE MALEATE
  23. SOLU-CORTEF [Concomitant]
     Active Substance: HYDROCORTISONE SODIUM SUCCINATE

REACTIONS (7)
  - Lymphadenopathy [Unknown]
  - Sinusitis [Unknown]
  - Deafness [Unknown]
  - Bronchopulmonary aspergillosis [Unknown]
  - Weight decreased [Unknown]
  - Hospitalisation [Recovered/Resolved]
  - Tinnitus [Unknown]

NARRATIVE: CASE EVENT DATE: 20170224
